FAERS Safety Report 11078373 (Version 2)
Quarter: 2015Q2

REPORT INFORMATION
  Report Type: Spontaneous
  Country: IT (occurrence: IT)
  Receive Date: 20150430
  Receipt Date: 20150601
  Transmission Date: 20150821
  Serious: Yes (Other)
  Sender: FDA-Public Use
  Company Number: IT-UCBSA-2015012722

PATIENT
  Age: 34 Year
  Sex: Male

DRUGS (2)
  1. KEPPRA [Suspect]
     Active Substance: LEVETIRACETAM
     Indication: PRODUCT USED FOR UNKNOWN INDICATION
     Dosage: UNK
     Dates: start: 20150401, end: 20150401
  2. TOPAMAX [Suspect]
     Active Substance: TOPIRAMATE
     Indication: PRODUCT USED FOR UNKNOWN INDICATION
     Dosage: 100 MG
     Dates: start: 20150401, end: 20150401

REACTIONS (4)
  - Intentional overdose [Unknown]
  - Self injurious behaviour [Recovered/Resolved]
  - Drug abuse [Unknown]
  - Confusional state [Unknown]

NARRATIVE: CASE EVENT DATE: 20150401
